FAERS Safety Report 5250491-1 (Version None)
Quarter: 2007Q1

REPORT INFORMATION
  Report Type: 
  Country: None (occurrence: None)
  Receive Date: 20070228
  Receipt Date: 20060424
  Transmission Date: 20070707
  Serious: Yes (Hospitalization)
  Sender: FDA-Public Use
  Company Number: US017145

PATIENT
  Age: 15 Year
  Sex: Female
  Weight: 52.3 kg

DRUGS (4)
  1. LAMICTAL [Suspect]
     Indication: COMPLEX PARTIAL SEIZURES
     Dosage: 325MG PER DAY
     Route: 048
     Dates: start: 19950101
  2. GABITRIL [Suspect]
     Indication: COMPLEX PARTIAL SEIZURES
     Dosage: 8MG THREE TIMES PER DAY
     Route: 048
     Dates: start: 20030101
  3. LEXAPRO [Concomitant]
     Dates: start: 20050601
  4. VITAMIN TAB [Concomitant]
     Dates: start: 20050601

REACTIONS (2)
  - COMPLEX PARTIAL SEIZURES [None]
  - DRUG INEFFECTIVE [None]
